FAERS Safety Report 24372178 (Version 3)
Quarter: 2025Q1

REPORT INFORMATION
  Report Type: Spontaneous
  Country: TR (occurrence: TR)
  Receive Date: 20240927
  Receipt Date: 20250108
  Transmission Date: 20250409
  Serious: Yes (Life-Threatening, Other)
  Sender: PFIZER
  Company Number: TR-PFIZER INC-PV202400121460

PATIENT
  Age: 14 Year
  Sex: Female
  Weight: 40 kg

DRUGS (3)
  1. NGENLA [Suspect]
     Active Substance: SOMATROGON-GHLA
     Indication: Blood growth hormone abnormal
     Route: 058
     Dates: start: 2024
  2. NGENLA [Suspect]
     Active Substance: SOMATROGON-GHLA
     Route: 058
     Dates: start: 2024
  3. NGENLA [Suspect]
     Active Substance: SOMATROGON-GHLA
     Route: 058
     Dates: start: 2024, end: 2024

REACTIONS (2)
  - Limb asymmetry [Recovered/Resolved with Sequelae]
  - Joint range of motion decreased [Recovered/Resolved with Sequelae]

NARRATIVE: CASE EVENT DATE: 20240101
